FAERS Safety Report 12583675 (Version 2)
Quarter: 2016Q4

REPORT INFORMATION
  Report Type: Spontaneous
  Country: DE (occurrence: DE)
  Receive Date: 20160722
  Receipt Date: 20161111
  Transmission Date: 20170207
  Serious: Yes (Death, Hospitalization)
  Sender: FDA-Public Use
  Company Number: DE-JNJFOC-20160716061

PATIENT
  Age: 77 Year
  Sex: Male
  Weight: 86 kg

DRUGS (12)
  1. MCP AL [Concomitant]
  2. TORASEMID [Concomitant]
     Active Substance: TORSEMIDE
     Route: 048
  3. FINASTERID [Concomitant]
     Active Substance: FINASTERIDE
  4. ALLOPURINOL. [Concomitant]
     Active Substance: ALLOPURINOL
  5. DIBENZYRAN [Concomitant]
     Active Substance: PHENOXYBENZAMINE HYDROCHLORIDE
     Route: 065
  6. OMEPRAZOLE. [Concomitant]
     Active Substance: OMEPRAZOLE
  7. IMBRUVICA [Suspect]
     Active Substance: IBRUTINIB
     Indication: CHRONIC LYMPHOCYTIC LEUKAEMIA
     Route: 048
     Dates: start: 20160518, end: 20160606
  8. XELEVIA [Concomitant]
     Active Substance: SITAGLIPTIN PHOSPHATE
  9. TAMSULOSIN [Concomitant]
     Active Substance: TAMSULOSIN
  10. ASPIRIN. [Concomitant]
     Active Substance: ASPIRIN
  11. CODEINTROPFEN HEXAL [Concomitant]
  12. RAMIPRIL. [Concomitant]
     Active Substance: RAMIPRIL

REACTIONS (6)
  - Anaemia [Fatal]
  - Pneumonia [Fatal]
  - Myocardial infarction [Fatal]
  - Cardiovascular disorder [Fatal]
  - Lymphocyte count increased [Fatal]
  - Sepsis [Fatal]

NARRATIVE: CASE EVENT DATE: 20160607
